FAERS Safety Report 23592124 (Version 1)
Quarter: 2024Q1

REPORT INFORMATION
  Report Type: Spontaneous
  Country: IT (occurrence: IT)
  Receive Date: 20240304
  Receipt Date: 20240304
  Transmission Date: 20240410
  Serious: Yes (Life-Threatening)
  Sender: FDA-Public Use
  Company Number: None

PATIENT
  Age: 39 Year
  Sex: Male
  Weight: 100 kg

DRUGS (7)
  1. FLUMAZENIL [Suspect]
     Active Substance: FLUMAZENIL
     Indication: Loss of consciousness
     Dosage: 1 VIAL (1 MG) IV?FORM OF ADMIN: SOLUTION FOR INJECTION
     Route: 042
     Dates: start: 20240108, end: 20240108
  2. FLUMAZENIL [Suspect]
     Active Substance: FLUMAZENIL
     Indication: Hypoventilation
  3. TEGRETOL [Concomitant]
     Active Substance: CARBAMAZEPINE
     Indication: Product used for unknown indication
  4. PALIPERIDONE PALMITATE [Concomitant]
     Active Substance: PALIPERIDONE PALMITATE
     Indication: Product used for unknown indication
  5. ANTABUSE [Concomitant]
     Active Substance: DISULFIRAM
     Indication: Product used for unknown indication
  6. RIVOTRIL [Concomitant]
     Active Substance: CLONAZEPAM
     Indication: Product used for unknown indication
  7. LEVOMEPROMAZINE [Concomitant]
     Active Substance: LEVOMEPROMAZINE
     Indication: Product used for unknown indication

REACTIONS (1)
  - Cardiac arrest [Recovered/Resolved]

NARRATIVE: CASE EVENT DATE: 20240108
